FAERS Safety Report 8683142 (Version 4)
Quarter: 2013Q4

REPORT INFORMATION
  Report Type: Spontaneous
  Country: US (occurrence: US)
  Receive Date: 20120726
  Receipt Date: 20131031
  Transmission Date: 20140711
  Serious: No
  Sender: FDA-Public Use
  Company Number: US-009507513-2012SP031286

PATIENT
  Age: 20 Year
  Sex: Female

DRUGS (1)
  1. IMPLANON [Suspect]
     Dosage: UNK DF, UNK
     Route: 058
     Dates: start: 20120224

REACTIONS (2)
  - Unintended pregnancy [Not Recovered/Not Resolved]
  - Medical device complication [Recovered/Resolved with Sequelae]
